FAERS Safety Report 8260082-6 (Version None)
Quarter: 2012Q2

REPORT INFORMATION
  Report Type: 
  Country: None (occurrence: None)
  Receive Date: 20120404
  Receipt Date: 20120326
  Transmission Date: 20120825
  Serious: Yes (Hospitalization, Other)
  Sender: FDA-Public Use
  Company Number: GB-JNJFOC-20120401464

PATIENT
  Age: 49 Year
  Sex: Female
  Weight: 71 kg

DRUGS (8)
  1. ACETAMINOPHEN [Concomitant]
     Indication: PAIN
     Dosage: 1 G ONE DOSE PER DAY
     Route: 048
  2. TRAMADOL HCL [Suspect]
     Indication: PAIN
     Route: 048
     Dates: start: 20110102, end: 20120109
  3. THIAMINE HCL [Concomitant]
     Indication: ALCOHOL USE
     Route: 048
     Dates: start: 20111205
  4. FLUOXETINE [Suspect]
     Route: 065
  5. PABRINEX [Concomitant]
     Indication: ALCOHOL USE
     Dates: start: 20111203, end: 20111205
  6. FLUOXETINE [Suspect]
     Indication: PRODUCT USED FOR UNKNOWN INDICATION
     Dosage: LOWER DOSE ON ALTERNATIVE DAYS
     Route: 065
     Dates: start: 20110116
  7. FOLIC ACID [Concomitant]
     Indication: PRODUCT USED FOR UNKNOWN INDICATION
  8. MULTI-VITAMINS [Concomitant]
     Indication: ALCOHOL USE
     Route: 048
     Dates: start: 20111205

REACTIONS (2)
  - CONVULSION [None]
  - HYPOGLYCAEMIA [None]
